FAERS Safety Report 12436786 (Version 1)
Quarter: 2016Q2

REPORT INFORMATION
  Report Type: Spontaneous
  Country: TR (occurrence: TR)
  Receive Date: 20160606
  Receipt Date: 20160606
  Transmission Date: 20160815
  Serious: Yes (Death)
  Sender: FDA-Public Use
  Company Number: TR-HORIZON-ACT-0135-2016

PATIENT
  Age: 70 Year
  Sex: Female

DRUGS (2)
  1. IMUKIN [Suspect]
     Active Substance: INTERFERON GAMMA
     Indication: PRODUCT USED FOR UNKNOWN INDICATION
  2. SUTENT [Suspect]
     Active Substance: SUNITINIB MALATE
     Indication: RENAL CELL CARCINOMA
     Dosage: 50 MG ONCE DAILY

REACTIONS (2)
  - Hepatic failure [Fatal]
  - Condition aggravated [Fatal]
